FAERS Safety Report 11507173 (Version 2)
Quarter: 2016Q2

REPORT INFORMATION
  Report Type: Spontaneous
  Country: IT (occurrence: IT)
  Receive Date: 20150915
  Receipt Date: 20160520
  Transmission Date: 20160815
  Serious: Yes (Other)
  Sender: FDA-Public Use
  Company Number: IT-TEVA-592091ACC

PATIENT
  Age: 14 Year
  Sex: Female
  Weight: 50 kg

DRUGS (3)
  1. NATULAN - 50 MG CAPSULE RIGIDE - SIGMA-TAU INDUSTRIE FARMACEUTICHE RIU [Concomitant]
     Indication: HODGKIN^S DISEASE
     Dosage: 150 MG
     Route: 048
     Dates: start: 20150708, end: 20150903
  2. CYCLOPHOSPHAMIDE. [Concomitant]
     Active Substance: CYCLOPHOSPHAMIDE
     Indication: HODGKIN^S DISEASE
     Dosage: 912 MG
     Route: 042
     Dates: start: 20150708, end: 20150903
  3. VINCRISTINA TEVA ITALIA - 1 MG/ML SOLUZIONE INIETTABILE - TEVA ITALIA [Suspect]
     Active Substance: VINCRISTINE
     Indication: HODGKIN^S DISEASE
     Dosage: 2.13 MG CYCLICAL
     Route: 042
     Dates: start: 20150708, end: 20150903

REACTIONS (2)
  - Hyperaesthesia [Not Recovered/Not Resolved]
  - Paraesthesia [Not Recovered/Not Resolved]

NARRATIVE: CASE EVENT DATE: 20150819
